FAERS Safety Report 7667592-0 (Version None)
Quarter: 2011Q3

REPORT INFORMATION
  Report Type: 
  Country: None (occurrence: None)
  Receive Date: 20110806
  Receipt Date: 20110517
  Transmission Date: 20111222
  Serious: No
  Sender: FDA-Public Use
  Company Number: US-ABBOTT-11P-163-0726282-00

PATIENT
  Sex: Female

DRUGS (4)
  1. ASPIRIN [Concomitant]
     Indication: PRODUCT USED FOR UNKNOWN INDICATION
     Dosage: Q HS
     Route: 048
  2. NIASPAN [Suspect]
     Indication: CORONARY ARTERY DISEASE
     Dosage: 1000MG AT BEDTIME
     Route: 048
     Dates: start: 20090101
  3. OTHER MEDICATIONS NOT REPORTED [Concomitant]
     Indication: PRODUCT USED FOR UNKNOWN INDICATION
  4. SIMVASTATIN [Concomitant]
     Indication: PRODUCT USED FOR UNKNOWN INDICATION

REACTIONS (1)
  - FLUSHING [None]
